FAERS Safety Report 7685248-5 (Version None)
Quarter: 2011Q3

REPORT INFORMATION
  Report Type: 
  Country: None (occurrence: None)
  Receive Date: 20110816
  Receipt Date: 20110810
  Transmission Date: 20111222
  Serious: Yes (Hospitalization, Other)
  Sender: FDA-Public Use
  Company Number: US-ELI_LILLY_AND_COMPANY-US201008003331

PATIENT
  Sex: Male
  Weight: 149.21 kg

DRUGS (6)
  1. BYETTA [Suspect]
     Indication: TYPE 2 DIABETES MELLITUS
     Dosage: 10 UG, BID
     Dates: start: 20081222, end: 20090301
  2. LIPITOR [Concomitant]
     Dosage: 40 MG, QD
  3. AMBIEN [Concomitant]
     Dosage: 10 MG, PRN
  4. NOVOLOG MIX 70/30 [Concomitant]
     Dosage: 50 U, BID
  5. ALTACE [Concomitant]
     Dosage: 5 MG, QD
  6. PERCOCET [Concomitant]
     Dosage: UNK, PRN

REACTIONS (2)
  - PANCREATITIS ACUTE [None]
  - OFF LABEL USE [None]
